FAERS Safety Report 5026435-4 (Version None)
Quarter: 2006Q2

REPORT INFORMATION
  Report Type: 
  Country: None (occurrence: None)
  Receive Date: 20060426
  Receipt Date: 20060305
  Transmission Date: 20061013
  Serious: Yes (Other)
  Sender: FDA-Public Use
  Company Number: 2006032568

PATIENT
  Age: 59 Year
  Sex: Female
  Weight: 88.905 kg

DRUGS (9)
  1. LYRICA [Suspect]
     Indication: NERVE INJURY
     Dosage: 150 MG (75 MG, 2 IN 1 D), ORAL
     Route: 048
     Dates: start: 20060221, end: 20060304
  2. PLAQUENIL [Concomitant]
  3. CARDIZEM [Concomitant]
  4. INDERAL [Concomitant]
  5. OXYCONTIN [Concomitant]
  6. FLEXERIL [Concomitant]
  7. TRAZODONE HCL [Concomitant]
  8. PROTONIX [Concomitant]
  9. ROXICODONE [Concomitant]

REACTIONS (3)
  - EYE HAEMORRHAGE [None]
  - VISION BLURRED [None]
  - VISUAL DISTURBANCE [None]
